FAERS Safety Report 15143094 (Version 1)
Quarter: 2018Q3

REPORT INFORMATION
  Report Type: Spontaneous
  Country: ZA (occurrence: ZA)
  Receive Date: 20180713
  Receipt Date: 20180713
  Transmission Date: 20181010
  Serious: Yes (Hospitalization)
  Sender: FDA-Public Use
  Company Number: ZA-PFIZER INC-2018279087

PATIENT
  Age: 78 Year
  Sex: Female

DRUGS (10)
  1. AMLODIPINE BESILATE [Suspect]
     Active Substance: AMLODIPINE BESYLATE
     Dosage: 5 MG, UNK
  2. ESCITALOPRAM [Suspect]
     Active Substance: ESCITALOPRAM OXALATE
     Dosage: 10 MG, UNK
  3. TESAR [Suspect]
     Active Substance: TELMISARTAN
     Dosage: 80 MG, UNK
  4. DIAGLUCIDE [Suspect]
     Active Substance: GLICLAZIDE
     Dosage: 30 MG, UNK
  5. LANCAP [Suspect]
     Active Substance: LANSOPRAZOLE
     Dosage: 30 MG, UNK
  6. RIVOTRIL [Suspect]
     Active Substance: CLONAZEPAM
     Dosage: 0.5 MG, UNK
  7. GLUCOPHAGE XR [Suspect]
     Active Substance: METFORMIN HYDROCHLORIDE
     Dosage: 500 MG, UNK
  8. SPIRACTIN (SPIRONOLACTONE) [Suspect]
     Active Substance: SPIRONOLACTONE
     Dosage: 25 MG, UNK
  9. XALATAN [Suspect]
     Active Substance: LATANOPROST
     Dosage: 50 UG, UNK
  10. CLOPIDOGREL [Suspect]
     Active Substance: CLOPIDOGREL BISULFATE
     Dosage: 75 MG, UNK

REACTIONS (1)
  - Aphasia [Unknown]
